FAERS Safety Report 8145759-5 (Version None)
Quarter: 2012Q1

REPORT INFORMATION
  Report Type: 
  Country: None (occurrence: None)
  Receive Date: 20120217
  Receipt Date: 20120209
  Transmission Date: 20120608
  Serious: Yes (Death)
  Sender: FDA-Public Use
  Company Number: JP-EISAI INC-E7389-01358-SPO-JP

PATIENT
  Sex: Female
  Weight: 65 kg

DRUGS (6)
  1. HALAVEN [Suspect]
     Indication: METASTASES TO BONE
  2. HALAVEN [Suspect]
     Indication: BREAST CANCER RECURRENT
     Route: 041
     Dates: start: 20110811, end: 20110811
  3. HALAVEN [Suspect]
     Indication: METASTASES TO LUNG
  4. URSO 250 [Concomitant]
  5. HALAVEN [Suspect]
     Indication: METASTASES TO BREAST
     Route: 041
     Dates: start: 20110728, end: 20110728
  6. GLYCYRON [Concomitant]
     Route: 048

REACTIONS (1)
  - NEOPLASM MALIGNANT [None]
